FAERS Safety Report 17425031 (Version 4)
Quarter: 2020Q1

REPORT INFORMATION
  Report Type: Report from Study
  Country: KR (occurrence: KR)
  Receive Date: 20200217
  Receipt Date: 20200303
  Transmission Date: 20200409
  Serious: Yes (Hospitalization)
  Sender: FDA-Public Use
  Company Number: KR-ROCHE-2546653

PATIENT
  Age: 57 Year
  Sex: Male
  Weight: 64.6 kg

DRUGS (17)
  1. DUPHALAC EASY [Concomitant]
     Active Substance: LACTULOSE
     Route: 065
     Dates: start: 20200210, end: 20200211
  2. DUPHALAC EASY [Concomitant]
     Active Substance: LACTULOSE
     Route: 065
     Dates: start: 20200213
  3. WINUF PERI [Concomitant]
     Active Substance: AMINO ACIDS\DEXTROSE\ELECTROLYTES NOS\SOYBEAN OIL\VITAMINS
     Route: 065
     Dates: start: 20200208, end: 20200213
  4. RO6874281 (FAP IL2V MAB) [Suspect]
     Active Substance: SIMLUKAFUSP ALFA
     Indication: METASTATIC RENAL CELL CARCINOMA
     Dosage: DATE OF LAST DOSE PRIOR TO ADVERSE EVENT: 03/FEB/2020
     Route: 042
     Dates: start: 20180917
  5. DUPHALAC EASY [Concomitant]
     Active Substance: LACTULOSE
     Route: 065
     Dates: start: 20200212, end: 20200212
  6. MUTERAN [Concomitant]
     Active Substance: ACETYLCYSTEINE
     Route: 065
     Dates: start: 20200211, end: 20200211
  7. ATEZOLIZUMAB. [Suspect]
     Active Substance: ATEZOLIZUMAB
     Indication: METASTATIC RENAL CELL CARCINOMA
     Dosage: DATE OF LAST DOSE OF ATEZOLIZUMAB PRIOR TO ADVERSE EVENT: 03/FEB/2020
     Route: 041
     Dates: start: 20180917
  8. SYNACTHENE [TETRACOSACTIDE] [Concomitant]
     Route: 065
     Dates: start: 20200210, end: 20200210
  9. TWOLION [Concomitant]
     Route: 065
     Dates: start: 20200209, end: 20200209
  10. TRIAXONE [Concomitant]
     Route: 065
     Dates: start: 20200208, end: 20200213
  11. TYLENOL [Concomitant]
     Active Substance: ACETAMINOPHEN
     Route: 065
  12. ACETAMINOPHEN. [Concomitant]
     Active Substance: ACETAMINOPHEN
     Route: 065
     Dates: start: 20200205, end: 20200206
  13. MAGNESIUM SULFATE. [Concomitant]
     Active Substance: MAGNESIUM SULFATE
     Route: 065
     Dates: start: 20200210, end: 20200210
  14. VYTORIN [Concomitant]
     Active Substance: EZETIMIBE\SIMVASTATIN
     Route: 065
     Dates: start: 20190423
  15. COMBIFLEX MCT PERI [Concomitant]
     Route: 065
     Dates: start: 20200206, end: 20200206
  16. NEUTROGIN [Concomitant]
     Active Substance: LENOGRASTIM
     Route: 065
     Dates: start: 20200209, end: 20200209
  17. MUTERAN [Concomitant]
     Active Substance: ACETYLCYSTEINE
     Route: 065
     Dates: start: 20200212

REACTIONS (1)
  - Acute kidney injury [Recovered/Resolved]

NARRATIVE: CASE EVENT DATE: 20200205
